FAERS Safety Report 19153259 (Version 2)
Quarter: 2021Q4

REPORT INFORMATION
  Report Type: Report from Study
  Country: JP (occurrence: JP)
  Receive Date: 20210419
  Receipt Date: 20211229
  Transmission Date: 20220303
  Serious: Yes (Hospitalization)
  Sender: FDA-Public Use
  Company Number: JP-TEVA-2021-JP-1902633

PATIENT
  Age: 68 Year
  Sex: Male

DRUGS (1)
  1. PREDNISOLONE [Suspect]
     Active Substance: PREDNISOLONE
     Indication: Myelodysplastic syndrome
     Route: 065

REACTIONS (1)
  - COVID-19 pneumonia [Unknown]
